FAERS Safety Report 11835572 (Version 2)
Quarter: 2016Q1

REPORT INFORMATION
  Report Type: Spontaneous
  Country: JP (occurrence: JP)
  Receive Date: 20151215
  Receipt Date: 20160106
  Transmission Date: 20160525
  Serious: No
  Sender: FDA-Public Use
  Company Number: JP-AMGEN-JPNSP2015133314

PATIENT
  Age: 62 Year
  Sex: Male
  Weight: 70.4 kg

DRUGS (26)
  1. CALCIUM LEVOFOLINATE [Suspect]
     Active Substance: LEVOLEUCOVORIN CALCIUM
     Indication: RECTAL CANCER RECURRENT
     Dosage: UNK
     Route: 041
     Dates: start: 200910, end: 20101110
  2. WARFARIN                           /00014803/ [Concomitant]
     Active Substance: WARFARIN
     Dosage: UNK
     Route: 048
     Dates: start: 20150428
  3. IRINOTECAN HYDROCHLORIDE. [Suspect]
     Active Substance: IRINOTECAN HYDROCHLORIDE
     Dosage: UNK, Q2WEEKS
     Route: 041
     Dates: start: 20150204
  4. CALCIUM LEVOFOLINATE [Suspect]
     Active Substance: LEVOLEUCOVORIN CALCIUM
     Dosage: UNK
     Route: 041
     Dates: start: 20111102, end: 20120820
  5. FLUOROURACIL. [Suspect]
     Active Substance: FLUOROURACIL
     Dosage: UNK
     Route: 042
     Dates: start: 20120905, end: 20121019
  6. FLUOROURACIL. [Suspect]
     Active Substance: FLUOROURACIL
     Dosage: UNK
     Route: 042
     Dates: start: 20121031, end: 20141015
  7. CALCIUM LEVOFOLINATE [Suspect]
     Active Substance: LEVOLEUCOVORIN CALCIUM
     Dosage: UNK, Q2WEEKS
     Route: 041
     Dates: start: 20141105, end: 20141203
  8. VECTIBIX [Suspect]
     Active Substance: PANITUMUMAB
     Dosage: 450 MG, Q2WEEKS
     Route: 041
     Dates: start: 20150204, end: 20150930
  9. IRINOTECAN HYDROCHLORIDE. [Suspect]
     Active Substance: IRINOTECAN HYDROCHLORIDE
     Dosage: UNK
     Route: 041
     Dates: start: 20121031, end: 20141015
  10. IRINOTECAN HYDROCHLORIDE. [Suspect]
     Active Substance: IRINOTECAN HYDROCHLORIDE
     Dosage: UNK UNK, Q2WEEKS
     Route: 041
     Dates: start: 20141105, end: 20141203
  11. FLUOROURACIL. [Suspect]
     Active Substance: FLUOROURACIL
     Dosage: UNK
     Route: 065
  12. CALCIUM LEVOFOLINATE [Suspect]
     Active Substance: LEVOLEUCOVORIN CALCIUM
     Dosage: UNK, Q2WEEKS
     Route: 041
     Dates: start: 20150204
  13. MYSER                              /01249201/ [Suspect]
     Active Substance: DIFLUPREDNATE
     Indication: DERMATITIS ACNEIFORM
     Dosage: UNK
     Route: 065
  14. URSO [Concomitant]
     Active Substance: URSODIOL
     Indication: LIVER DISORDER
     Dosage: 100 MG, TID
     Route: 048
  15. FLUOROURACIL. [Suspect]
     Active Substance: FLUOROURACIL
     Dosage: UNK, Q2WEEKS
     Route: 042
     Dates: start: 20150204
  16. CALCIUM LEVOFOLINATE [Suspect]
     Active Substance: LEVOLEUCOVORIN CALCIUM
     Dosage: UNK
     Route: 041
     Dates: start: 20120905, end: 20121019
  17. MYSER /01249201/ [Suspect]
     Active Substance: DIFLUPREDNATE
     Indication: PROPHYLAXIS
     Dosage: UNK
     Route: 062
     Dates: start: 20150204
  18. NOVORAPID [Concomitant]
     Active Substance: INSULIN ASPART
     Indication: TYPE 2 DIABETES MELLITUS
     Dosage: UNK
     Route: 050
  19. LANTUS [Concomitant]
     Active Substance: INSULIN GLARGINE
     Indication: TYPE 2 DIABETES MELLITUS
     Dosage: 20 IU, UNK
     Route: 050
  20. IRINOTECAN HYDROCHLORIDE. [Suspect]
     Active Substance: IRINOTECAN HYDROCHLORIDE
     Indication: RECTAL CANCER RECURRENT
     Dosage: UNK
     Route: 041
     Dates: start: 20120905, end: 20121019
  21. FLUOROURACIL. [Suspect]
     Active Substance: FLUOROURACIL
     Indication: RECTAL CANCER RECURRENT
     Dosage: UNK
     Route: 042
     Dates: start: 20111102, end: 20120820
  22. FLUOROURACIL. [Suspect]
     Active Substance: FLUOROURACIL
     Dosage: UNK, Q2WEEKS
     Route: 042
     Dates: start: 20141105, end: 20141203
  23. VECTIBIX [Suspect]
     Active Substance: PANITUMUMAB
     Indication: RECTAL CANCER RECURRENT
     Dosage: UNK UNK, Q2WEEKS
     Route: 041
     Dates: start: 20141105, end: 20141203
  24. VECTIBIX [Suspect]
     Active Substance: PANITUMUMAB
     Dosage: 400 MG, Q2WEEKS
     Route: 041
     Dates: start: 20151014
  25. CALCIUM LEVOFOLINATE [Suspect]
     Active Substance: LEVOLEUCOVORIN CALCIUM
     Dosage: UNK
     Route: 041
     Dates: start: 20121031, end: 20141015
  26. MYSER                              /01249201/ [Suspect]
     Active Substance: DIFLUPREDNATE
     Indication: PARONYCHIA
     Dosage: UNK
     Route: 065

REACTIONS (3)
  - Folliculitis [Recovering/Resolving]
  - Dermatitis acneiform [Unknown]
  - Paronychia [Unknown]

NARRATIVE: CASE EVENT DATE: 20150930
